FAERS Safety Report 5702595-4 (Version None)
Quarter: 2008Q2

REPORT INFORMATION
  Report Type: 
  Country: None (occurrence: None)
  Receive Date: 20080408
  Receipt Date: 20080327
  Transmission Date: 20081010
  Serious: Yes (Other)
  Sender: FDA-Public Use
  Company Number: 2008007713

PATIENT
  Age: 54 Year
  Sex: Female

DRUGS (1)
  1. ROGAINE [Suspect]
     Indication: ALOPECIA
     Dosage: TOPICAL
     Route: 061
     Dates: start: 20080201, end: 20080101

REACTIONS (5)
  - CATARACT [None]
  - DIZZINESS [None]
  - GLAUCOMA [None]
  - INSOMNIA [None]
  - PALPITATIONS [None]
